FAERS Safety Report 16061719 (Version 7)
Quarter: 2023Q1

REPORT INFORMATION
  Report Type: Spontaneous
  Country: US (occurrence: US)
  Receive Date: 20190312
  Receipt Date: 20230317
  Transmission Date: 20230418
  Serious: Yes (Other)
  Sender: FDA-Public Use
  Company Number: US-PFIZER INC-2019102089

PATIENT
  Age: 68 Year
  Sex: Female

DRUGS (1)
  1. XELJANZ XR [Suspect]
     Active Substance: TOFACITINIB CITRATE
     Dosage: 11 MG

REACTIONS (9)
  - Upper limb fracture [Unknown]
  - Fall [Unknown]
  - Abdominal discomfort [Unknown]
  - Somnolence [Unknown]
  - Gait disturbance [Unknown]
  - Urinary tract infection [Not Recovered/Not Resolved]
  - Joint injury [Unknown]
  - Loss of personal independence in daily activities [Unknown]
  - Infection [Unknown]

NARRATIVE: CASE EVENT DATE: 20190301
